FAERS Safety Report 7129369 (Version 3)
Quarter: 2014Q4

REPORT INFORMATION
  Report Type: Report from Study
  Country: JP (occurrence: JP)
  Receive Date: 20090924
  Receipt Date: 20141124
  Transmission Date: 20150529
  Serious: Yes (Other)
  Sender: FDA-Public Use
  Company Number: PHHY2009JP21463

PATIENT
  Age: 68 Year
  Sex: Female

DRUGS (4)
  1. MYTEAR [Concomitant]
     Indication: LACRIMATION INCREASED
     Route: 047
     Dates: start: 20090514, end: 20090527
  2. AMN107 [Suspect]
     Active Substance: NILOTINIB
     Dosage: 800 MG, QD
     Route: 048
     Dates: start: 20100211, end: 20100324
  3. AMN107 [Suspect]
     Active Substance: NILOTINIB
     Indication: CHRONIC MYELOID LEUKAEMIA
     Dosage: 800 MG, QD
     Route: 048
     Dates: start: 20090514, end: 20090610
  4. AMN107 [Suspect]
     Active Substance: NILOTINIB
     Dosage: 400 MG, UNK
     Route: 048

REACTIONS (9)
  - Thrombocytopenia [Unknown]
  - Rash [Recovered/Resolved]
  - Blood alkaline phosphatase increased [Unknown]
  - Blood glucose increased [Unknown]
  - Blood bilirubin increased [Recovered/Resolved]
  - White blood cell count decreased [Unknown]
  - Platelet count decreased [Recovering/Resolving]
  - Gastrointestinal disorder [Recovered/Resolved]
  - Electrocardiogram QT prolonged [Unknown]

NARRATIVE: CASE EVENT DATE: 20090521
